FAERS Safety Report 4965332-7 (Version None)
Quarter: 2006Q2

REPORT INFORMATION
  Report Type: 
  Country: None (occurrence: None)
  Receive Date: 20060406
  Receipt Date: 20051102
  Transmission Date: 20061013
  Serious: Yes (Other)
  Sender: FDA-Public Use
  Company Number: US-MERCK-0511USA00637

PATIENT
  Age: 71 Year
  Sex: Male
  Weight: 109 kg

DRUGS (13)
  1. VIOXX [Suspect]
     Indication: ARTHRITIS
     Route: 048
     Dates: start: 20020101, end: 20040101
  2. TYLENOL (CAPLET) [Concomitant]
     Indication: ARTHRITIS
     Route: 048
  3. DICLOFENAC SANDOZ [Concomitant]
     Indication: ARTHRITIS
     Route: 065
     Dates: start: 19990108
  4. VICODIN [Concomitant]
     Indication: ARTHRITIS
     Route: 065
     Dates: start: 20000316
  5. PREDNISONE [Concomitant]
     Indication: ARTHRITIS
     Route: 065
     Dates: start: 20020325
  6. PRINZIDE [Concomitant]
     Indication: HYPERTENSION
     Route: 065
     Dates: start: 20000331, end: 20000519
  7. PRINZIDE [Concomitant]
     Indication: CARDIAC DISORDER
     Route: 065
     Dates: start: 20000331, end: 20000519
  8. LOTENSIN [Concomitant]
     Indication: HYPERTENSION
     Route: 065
     Dates: start: 19990122, end: 20030917
  9. LOTENSIN [Concomitant]
     Indication: CARDIAC DISORDER
     Route: 065
     Dates: start: 19990122, end: 20030917
  10. NORVASC [Concomitant]
     Indication: CARDIAC DISORDER
     Route: 065
     Dates: start: 20020207
  11. PLENDIL [Concomitant]
     Indication: CARDIAC DISORDER
     Route: 065
     Dates: start: 19990107, end: 20030505
  12. PLAVIX [Concomitant]
     Route: 065
     Dates: start: 20000607
  13. LIPITOR [Concomitant]
     Route: 065
     Dates: start: 19990904, end: 20030107

REACTIONS (9)
  - CEREBROVASCULAR ACCIDENT [None]
  - DEEP VEIN THROMBOSIS [None]
  - DIZZINESS [None]
  - DYSPNOEA [None]
  - FATIGUE [None]
  - INSOMNIA [None]
  - PULMONARY EMBOLISM [None]
  - PULMONARY OEDEMA [None]
  - VISUAL FIELD DEFECT [None]
